FAERS Safety Report 8355917-2 (Version None)
Quarter: 2012Q2

REPORT INFORMATION
  Report Type: 
  Country: None (occurrence: None)
  Receive Date: 20120511
  Receipt Date: 20120511
  Transmission Date: 20120825
  Serious: No
  Sender: FDA-Public Use
  Company Number: None

PATIENT
  Sex: Female
  Weight: 81.6475 kg

DRUGS (1)
  1. TRANDOLAPRIL [Suspect]

REACTIONS (3)
  - INCORRECT DOSE ADMINISTERED [None]
  - PRODUCT SIZE ISSUE [None]
  - DRUG DISPENSING ERROR [None]
